FAERS Safety Report 7244232-6 (Version None)
Quarter: 2011Q1

REPORT INFORMATION
  Report Type: 
  Country: None (occurrence: None)
  Receive Date: 20110119
  Receipt Date: 20110119
  Transmission Date: 20110831
  Serious: No
  Sender: FDA-Public Use
  Company Number: None

PATIENT
  Age: 59 Year
  Sex: Female
  Weight: 64.4108 kg

DRUGS (1)
  1. CYMBALTA [Suspect]

REACTIONS (8)
  - LIBIDO DECREASED [None]
  - DRY MOUTH [None]
  - DRUG EFFECT DECREASED [None]
  - DRUG DOSE OMISSION [None]
  - DRUG DEPENDENCE [None]
  - SENSORY DISTURBANCE [None]
  - WEIGHT INCREASED [None]
  - DRUG WITHDRAWAL SYNDROME [None]
